FAERS Safety Report 9327084 (Version 2)
Quarter: 2013Q2

REPORT INFORMATION
  Report Type: Spontaneous
  Country: FR (occurrence: FR)
  Receive Date: 20130604
  Receipt Date: 20130612
  Transmission Date: 20140414
  Serious: Yes (Hospitalization)
  Sender: FDA-Public Use
  Company Number: PHHY2013FR053922

PATIENT
  Age: 62 Year
  Sex: Female

DRUGS (3)
  1. RIBAVIRIN [Suspect]
     Indication: CHRONIC HEPATITIS C
     Dosage: 1000 MG, DAILY
  2. AMANTADINE [Suspect]
     Indication: CHRONIC HEPATITIS C
     Dosage: 300 MG, DAILY
  3. PEGINTERFERON ALFA-2A [Suspect]
     Indication: CHRONIC HEPATITIS C
     Dosage: 180 UG, WEEKLY
     Route: 058

REACTIONS (14)
  - Cerebral sarcoidosis [Recovered/Resolved]
  - Agnosia [Recovered/Resolved]
  - Pleocytosis [Recovered/Resolved]
  - Guillain-Barre syndrome [Recovered/Resolved]
  - Demyelination [Unknown]
  - Loss of proprioception [Recovered/Resolved]
  - Paraesthesia [Recovered/Resolved]
  - Radicular pain [Recovered/Resolved]
  - Paraparesis [Recovered/Resolved]
  - Areflexia [Recovered/Resolved]
  - Neuralgia [Unknown]
  - Gait disturbance [Recovering/Resolving]
  - Spondylolisthesis [Recovered/Resolved]
  - Intervertebral disc protrusion [Recovered/Resolved]
